FAERS Safety Report 10160560 (Version 1)
Quarter: 2014Q2

REPORT INFORMATION
  Report Type: Report from Study
  Country: CA (occurrence: CA)
  Receive Date: 20140508
  Receipt Date: 20140508
  Transmission Date: 20141212
  Serious: Yes (Other)
  Sender: FDA-Public Use
  Company Number: CA-JNJFOC-20140501064

PATIENT
  Age: 27 Year
  Sex: Male
  Weight: 76.6 kg

DRUGS (5)
  1. REMICADE [Suspect]
     Indication: CROHN^S DISEASE
     Dosage: WEEK 6
     Route: 042
     Dates: start: 20140306
  2. REMICADE [Suspect]
     Indication: CROHN^S DISEASE
     Dosage: WEEK 2
     Route: 042
     Dates: start: 20140206
  3. REMICADE [Suspect]
     Indication: CROHN^S DISEASE
     Dosage: WEEK 0
     Route: 042
     Dates: start: 20140123
  4. REMICADE [Suspect]
     Indication: CROHN^S DISEASE
     Route: 042
     Dates: start: 20140501
  5. AZATHIOPRINE [Concomitant]
     Dosage: 3 TABLETS
     Route: 048

REACTIONS (1)
  - Fistula [Not Recovered/Not Resolved]
